FAERS Safety Report 11351220 (Version 3)
Quarter: 2015Q3

REPORT INFORMATION
  Report Type: Spontaneous
  Country: US (occurrence: US)
  Receive Date: 20150807
  Receipt Date: 20150917
  Transmission Date: 20151125
  Serious: No
  Sender: FDA-Public Use
  Company Number: US-PFIZER INC-2015263073

PATIENT
  Age: 55 Year
  Sex: Male
  Weight: 52 kg

DRUGS (3)
  1. ADVIL [Suspect]
     Active Substance: IBUPROFEN
     Indication: MUSCLE STRAIN
  2. ALLOPURINOL. [Concomitant]
     Active Substance: ALLOPURINOL
     Indication: GOUT
     Dosage: UNK
  3. ADVIL [Suspect]
     Active Substance: IBUPROFEN
     Indication: POST-TRAUMATIC NECK SYNDROME
     Dosage: 400 MG EVERY 4-6 HOURS AS NEEDED
     Route: 048
     Dates: start: 20150703

REACTIONS (7)
  - Malaise [Unknown]
  - Insomnia [Unknown]
  - Intentional product misuse [Unknown]
  - Eating disorder [Unknown]
  - Tinnitus [Not Recovered/Not Resolved]
  - Weight decreased [Unknown]
  - Anxiety [Unknown]
